FAERS Safety Report 9973435 (Version 1)
Quarter: 2014Q1

REPORT INFORMATION
  Report Type: Spontaneous
  Country: US (occurrence: None)
  Receive Date: 20140128
  Receipt Date: 20140128
  Transmission Date: 20141002
  Serious: Yes (Other)
  Sender: FDA-Public Use
  Company Number: A-US2012-75513

PATIENT
  Age: 1 Year
  Sex: Male

DRUGS (9)
  1. TRACLEER [Suspect]
     Indication: PULMONARY ARTERIAL HYPERTENSION
     Route: 048
     Dates: start: 20121101, end: 20121126
  2. SILDENAFIL (SILDENAFIL) [Concomitant]
  3. FUROSEMIDE (FUROSEMIDE) [Concomitant]
  4. ASPIRIN (ACETYLSALICYLIC ACID) [Concomitant]
  5. DIFLUCAN (FLUCONAZOLE) [Concomitant]
  6. REGLAN (METOCLOPRAMIDE) [Concomitant]
  7. RANITIDINE (RANITIDINE) [Concomitant]
  8. VITAMIN D3 (COLCECALCIFEROL) [Concomitant]
  9. AMOXICILLIN (AMOXICILLIN) [Concomitant]

REACTIONS (4)
  - Hepatic enzyme increased [None]
  - Aspartate aminotransferase increased [None]
  - Alanine aminotransferase increased [None]
  - Blood alkaline phosphatase increased [None]
